FAERS Safety Report 17912569 (Version 1)
Quarter: 2020Q2

REPORT INFORMATION
  Report Type: Spontaneous
  Country: GB (occurrence: GB)
  Receive Date: 20200618
  Receipt Date: 20200618
  Transmission Date: 20200714
  Serious: No
  Sender: FDA-Public Use
  Company Number: GB-LEXICON PHARMACEUTICALS, INC-20-1606-00456

PATIENT
  Age: 64 Year
  Sex: Male

DRUGS (3)
  1. LUTETIUM [Concomitant]
     Dosage: RECEIVED 4 CYCLES- GIVEN EVERY 6 TO 8 WEEKS
  2. XERMELO [Suspect]
     Active Substance: TELOTRISTAT ETHYL
     Indication: NEUROENDOCRINE TUMOUR
     Route: 065
  3. LANREOTIDE [Concomitant]
     Active Substance: LANREOTIDE

REACTIONS (1)
  - Off label use [Unknown]
